FAERS Safety Report 20988337 (Version 1)
Quarter: 2022Q2

REPORT INFORMATION
  Report Type: Spontaneous
  Country: US (occurrence: None)
  Receive Date: 20220620
  Receipt Date: 20220620
  Transmission Date: 20220721
  Serious: No
  Sender: FDA-Public Use
  Company Number: None

PATIENT
  Age: 71 Year
  Sex: Male
  Weight: 102.6 kg

DRUGS (1)
  1. HYDROCORTISONE AND ACETIC ACID [Suspect]
     Active Substance: ACETIC ACID\HYDROCORTISONE
     Indication: Ear infection
     Dosage: FREQUENCY : TWICE A DAY;?
     Route: 001
     Dates: start: 20220616, end: 20220620

REACTIONS (2)
  - Glossodynia [None]
  - Ear discomfort [None]

NARRATIVE: CASE EVENT DATE: 20220620
